FAERS Safety Report 6261759-4 (Version None)
Quarter: 2009Q3

REPORT INFORMATION
  Report Type: 
  Country: None (occurrence: None)
  Receive Date: 20090707
  Receipt Date: 20090707
  Transmission Date: 20100115
  Serious: Yes (Disabling, Other)
  Sender: FDA-Public Use
  Company Number: None

PATIENT
  Age: 27 Year
  Sex: Male
  Weight: 104.3273 kg

DRUGS (2)
  1. TOPIRAMATE [Suspect]
     Indication: CONVULSION
     Dosage: 100MG 1 DAILY PO
     Route: 048
     Dates: start: 20070813, end: 20090704
  2. TOPIRAMATE [Suspect]
     Indication: MIGRAINE
     Dosage: 100MG 1 DAILY PO
     Route: 048
     Dates: start: 20070813, end: 20090704

REACTIONS (9)
  - DEPRESSION [None]
  - HYPOGONADISM [None]
  - LETHARGY [None]
  - LOSS OF LIBIDO [None]
  - NIPPLE DISORDER [None]
  - NIPPLE OEDEMA [None]
  - NIPPLE PAIN [None]
  - PRURITUS [None]
  - WEIGHT INCREASED [None]
